FAERS Safety Report 20182522 (Version 1)
Quarter: 2021Q4

REPORT INFORMATION
  Report Type: Spontaneous
  Country: US (occurrence: US)
  Receive Date: 20211214
  Receipt Date: 20211214
  Transmission Date: 20220304
  Serious: No
  Sender: FDA-Public Use
  Company Number: US-GSKCCFUS-Case-01240997_AE-72739

PATIENT
  Sex: Female

DRUGS (1)
  1. INCRUSE ELLIPTA [Suspect]
     Active Substance: UMECLIDINIUM BROMIDE
     Indication: Product used for unknown indication
     Dosage: 1 PUFF(S), QOD 62.5MCG EVERY OTHER DAY
     Route: 055

REACTIONS (2)
  - Inappropriate schedule of product administration [Unknown]
  - Circumstance or information capable of leading to medication error [Unknown]
